FAERS Safety Report 8167896-1 (Version None)
Quarter: 2012Q1

REPORT INFORMATION
  Report Type: 
  Country: None (occurrence: None)
  Receive Date: 20120227
  Receipt Date: 20120209
  Transmission Date: 20120608
  Serious: Yes (Other)
  Sender: FDA-Public Use
  Company Number: US-ROCHE-1017815

PATIENT
  Sex: Male
  Weight: 61.8 kg

DRUGS (6)
  1. VEMURAFENIB [Suspect]
     Indication: METASTATIC MALIGNANT MELANOMA
     Route: 048
     Dates: start: 20100921
  2. LORATADINE [Concomitant]
     Indication: HYPERSENSITIVITY
     Route: 048
     Dates: start: 20091201
  3. ASPIRIN [Concomitant]
     Indication: MYALGIA
     Route: 048
     Dates: start: 20091201
  4. ASPIRIN [Concomitant]
     Route: 048
     Dates: start: 19950101, end: 20091201
  5. BENAZEPRIL HYDROCHLORIDE [Concomitant]
     Indication: BLOOD PRESSURE
     Route: 048
     Dates: start: 20070106
  6. FISH OIL [Concomitant]
     Route: 048
     Dates: start: 20090107, end: 20091201

REACTIONS (1)
  - TONGUE NEOPLASM MALIGNANT STAGE UNSPECIFIED [None]
